FAERS Safety Report 15367057 (Version 1)
Quarter: 2018Q3

REPORT INFORMATION
  Report Type: Report from Study
  Country: US (occurrence: US)
  Receive Date: 20180910
  Receipt Date: 20180910
  Transmission Date: 20181010
  Serious: Yes (Other)
  Sender: FDA-Public Use
  Company Number: US-BAYER-2018-134169

PATIENT
  Age: 2 Year
  Sex: Male
  Weight: 12.9 kg

DRUGS (7)
  1. AQUAPHOR [MINERAL WAX,PARAFFIN, LIQUID,PETROLATUM,WOOL ALCOHOLS] [Concomitant]
     Dosage: UNK UNK, BID
  2. CEFTRIAXONE. [Concomitant]
     Active Substance: CEFTRIAXONE
  3. HYDROCORTISONE. [Concomitant]
     Active Substance: HYDROCORTISONE
     Indication: ECZEMA
  4. BACTRIM [Concomitant]
     Active Substance: SULFAMETHOXAZOLE\TRIMETHOPRIM
  5. NEXAVAR [Suspect]
     Active Substance: SORAFENIB
     Indication: SOFT TISSUE SARCOMA
     Dosage: DAILY DOSE 100 MG
     Route: 048
     Dates: start: 20171218
  6. NEXAVAR [Suspect]
     Active Substance: SORAFENIB
     Indication: SOFT TISSUE SARCOMA
     Dosage: DAILY DOSE 120 MG
     Route: 048
  7. SEPTRA [Concomitant]
     Active Substance: SULFAMETHOXAZOLE\TRIMETHOPRIM
     Dosage: UNK, BID

REACTIONS (14)
  - Fatigue [None]
  - Off label use [None]
  - Drug administered to patient of inappropriate age [None]
  - Wrong technique in product usage process [None]
  - Eczema [None]
  - Febrile convulsion [Recovered/Resolved]
  - Muscle spasms [None]
  - Neutropenia [None]
  - Influenza [None]
  - Dry skin [None]
  - Pruritus [None]
  - Pyrexia [Recovered/Resolved]
  - Product use in unapproved indication [None]
  - Urinary tract infection [None]

NARRATIVE: CASE EVENT DATE: 20180618
